FAERS Safety Report 8332161-6 (Version None)
Quarter: 2012Q2

REPORT INFORMATION
  Report Type: 
  Country: None (occurrence: None)
  Receive Date: 20120503
  Receipt Date: 20120427
  Transmission Date: 20120825
  Serious: Yes (Other)
  Sender: FDA-Public Use
  Company Number: US-AMGEN-USASP2012005345

PATIENT
  Age: 8 Year
  Sex: Male

DRUGS (1)
  1. NEUPOGEN [Suspect]
     Dosage: UNK UNK, BID
     Route: 064
     Dates: start: 19890101, end: 19910101

REACTIONS (12)
  - NEONATAL ASPIRATION [None]
  - CROHN'S DISEASE [None]
  - VOMITING [None]
  - RED BLOOD CELL ABNORMALITY [None]
  - PLATELET COUNT ABNORMAL [None]
  - BIOPSY STOMACH ABNORMAL [None]
  - IMMUNE SYSTEM DISORDER [None]
  - BIOPSY INTESTINE ABNORMAL [None]
  - MEAN PLATELET VOLUME ABNORMAL [None]
  - DEPRESSION SUICIDAL [None]
  - BIOPSY OESOPHAGUS ABNORMAL [None]
  - SCLERODERMA [None]
